FAERS Safety Report 8671551 (Version 3)
Quarter: 2012Q4

REPORT INFORMATION
  Report Type: Report from Study
  Country: JP (occurrence: JP)
  Receive Date: 20120718
  Receipt Date: 20121112
  Transmission Date: 20130627
  Serious: Yes (Death, Life-Threatening, Hospitalization, Disabling, Other)
  Sender: FDA-Public Use
  Company Number: JP-CELGENEUS-087-21880-11051188

PATIENT
  Age: 80 Year
  Sex: Male

DRUGS (47)
  1. REVLIMID [Suspect]
     Indication: MULTIPLE MYELOMA
     Dosage: 15 Milligram
     Route: 048
     Dates: start: 20110324, end: 20110413
  2. REVLIMID [Suspect]
     Dosage: 15 Milligram
     Route: 048
     Dates: start: 20110421, end: 20110511
  3. REVLIMID [Suspect]
     Dosage: 5 Milligram
     Route: 048
     Dates: start: 20110817, end: 20110906
  4. REVLIMID [Suspect]
     Dosage: 5 Milligram
     Route: 048
     Dates: start: 20110914, end: 20111003
  5. REVLIMID [Suspect]
     Dosage: 5 Milligram
     Route: 048
     Dates: start: 20111012, end: 20111022
  6. REVLIMID [Suspect]
     Dosage: 5 Milligram
     Route: 048
     Dates: start: 20111211, end: 20111231
  7. REVLIMID [Suspect]
     Route: 048
     Dates: start: 20120108
  8. REVLIMID [Suspect]
     Dosage: 5 Milligram
     Route: 048
     Dates: start: 20120125, end: 20120211
  9. PREDONINE [Suspect]
     Indication: MULTIPLE MYELOMA
     Dosage: 60 Milligram
     Route: 048
     Dates: start: 20110324, end: 20110330
  10. PREDONINE [Suspect]
     Dosage: 5 Milligram
     Route: 048
     Dates: start: 20110331, end: 20110413
  11. PREDONINE [Suspect]
     Dosage: 60 Milligram
     Route: 048
     Dates: start: 20110421, end: 20110511
  12. PREDONINE [Suspect]
     Dosage: 5 Milligram
     Route: 048
     Dates: start: 20110512, end: 20110525
  13. PREDONINE [Suspect]
     Dosage: 60 Milligram
     Route: 048
     Dates: start: 20110526, end: 20110601
  14. PREDONINE [Suspect]
     Dosage: 10 Milligram
     Route: 048
     Dates: start: 20110817, end: 20120208
  15. DEXAMETHASONE [Suspect]
     Indication: MULTIPLE MYELOMA
     Dosage: 2.8571 Milligram
     Route: 048
     Dates: start: 20111210, end: 20120107
  16. DEXAMETHASONE [Suspect]
     Dosage: 2.8571 Milligram
     Route: 048
     Dates: start: 20120113, end: 20120203
  17. PREDNISOLONE [Suspect]
     Indication: MULTIPLE MYELOMA
     Dosage: 10 Milligram
     Route: 041
     Dates: start: 20120209, end: 20120217
  18. VALTREX [Suspect]
     Indication: PROPHYLAXIS
     Dosage: 250 Milligram
     Route: 048
     Dates: start: 20120107, end: 20120204
  19. BROACT [Suspect]
     Indication: PNEUMONIA
     Dosage: 2 Gram
     Route: 041
     Dates: start: 20120125, end: 20120201
  20. KLARICID [Concomitant]
     Indication: MULTIPLE MYELOMA
     Dosage: 200 Milligram
     Route: 048
     Dates: start: 20111127, end: 20120107
  21. GLUFAST [Concomitant]
     Indication: DIABETES MELLITUS
     Dosage: 30 Milligram
     Route: 048
     Dates: start: 20110302, end: 20110607
  22. GLUFAST [Concomitant]
     Dosage: 30 Milligram
     Route: 048
     Dates: start: 20110817, end: 20120209
  23. WARFARIN [Concomitant]
     Indication: PROPHYLAXIS
     Dosage: 2 Milligram
     Route: 048
     Dates: start: 20090610, end: 20110511
  24. WARFARIN [Concomitant]
     Dosage: 1.5 Milligram
     Route: 048
     Dates: start: 20110518, end: 20110524
  25. WARFARIN [Concomitant]
     Dosage: 2 Milligram
     Route: 048
     Dates: start: 20110525, end: 20110607
  26. WARFARIN [Concomitant]
     Dosage: 1.5 Milligram
     Route: 048
     Dates: start: 20110817, end: 20111126
  27. GASTER [Concomitant]
     Indication: PROPHYLAXIS
     Dosage: 10 Milligram
     Route: 048
     Dates: start: 20100804, end: 20110524
  28. MUCOSTA [Concomitant]
     Indication: PROPHYLAXIS
     Dosage: 100 Milligram
     Route: 048
     Dates: start: 20090909, end: 20110607
  29. MUCOSTA [Concomitant]
     Dosage: 100 Milligram
     Route: 048
     Dates: start: 20110817, end: 20120208
  30. THYRADIN S [Concomitant]
     Indication: DRUG USE FOR UNKNOWN INDICATION
     Dosage: 75 Microgram
     Route: 048
     Dates: start: 198111, end: 20110607
  31. THYRADIN S [Concomitant]
     Dosage: 75 Microgram
     Route: 048
     Dates: start: 20110817, end: 20120107
  32. THYRADIN S [Concomitant]
     Dosage: 50 Microgram
     Route: 048
     Dates: start: 20120108, end: 20120217
  33. DIOVAN [Concomitant]
     Indication: HYPERTENSION
     Dosage: 40 Milligram
     Route: 048
     Dates: start: 200411, end: 20110607
  34. DIOVAN [Concomitant]
     Dosage: 40 Milligram
     Route: 048
     Dates: start: 20110817, end: 20120208
  35. HARNAL [Concomitant]
     Indication: DRUG USE FOR UNKNOWN INDICATION
     Dosage: .2 Milligram
     Route: 048
     Dates: start: 200411, end: 20110607
  36. HARNAL [Concomitant]
     Dosage: .2 Milligram
     Route: 048
     Dates: start: 20110817, end: 20120208
  37. MAGNESIUM OXIDE [Concomitant]
     Indication: PROPHYLAXIS
     Dosage: 3 Gram
     Route: 048
     Dates: start: 20090204, end: 20110607
  38. MAGNESIUM OXIDE [Concomitant]
     Dosage: 3 Gram
     Route: 048
     Dates: start: 20110817, end: 20120208
  39. ZOMETA [Concomitant]
     Indication: PROPHYLAXIS
     Dosage: .1 Milligram
     Route: 041
     Dates: start: 20110323, end: 20110420
  40. ZOMETA [Concomitant]
     Dosage: 3 Milligram
     Route: 041
     Dates: start: 20110518, end: 20110518
  41. SLOW-K [Concomitant]
     Indication: PROPHYLAXIS
     Dosage: 1.2 Gram
     Route: 048
     Dates: start: 20110817, end: 20120107
  42. SLOW-K [Concomitant]
     Dosage: 600 Milligram
     Route: 048
     Dates: start: 20120108, end: 20120209
  43. SHA-KANZO-TO [Concomitant]
     Indication: PROPHYLAXIS
     Dosage: 7.5 Gram
     Route: 048
     Dates: start: 20110817, end: 20120107
  44. SHA-KANZO-TO [Concomitant]
     Dosage: 7 Gram
     Route: 048
     Dates: start: 20120108, end: 20120208
  45. FLOMOX [Concomitant]
     Indication: PROPHYLAXIS
     Dosage: 400 Milligram
     Route: 048
     Dates: start: 20111018, end: 20111022
  46. HUMULIN R [Concomitant]
     Indication: DIABETES MELLITUS
     Dosage: 10-22 U
     Route: 058
     Dates: start: 20120118, end: 20120205
  47. TAKEPRON [Concomitant]
     Indication: PROPHYLAXIS
     Dosage: 30 Milligram
     Route: 048
     Dates: start: 20120108, end: 20120217

REACTIONS (26)
  - Sepsis [Fatal]
  - Pneumonia [Fatal]
  - Neutropenia [Recovered/Resolved]
  - Thrombocytopenia [Not Recovered/Not Resolved]
  - Disseminated intravascular coagulation [Not Recovered/Not Resolved]
  - Lobar pneumonia [Recovering/Resolving]
  - Haemoglobin decreased [Not Recovered/Not Resolved]
  - Neutrophil count decreased [Recovered/Resolved]
  - Anaemia [Recovered/Resolved]
  - Platelet count decreased [Recovered/Resolved]
  - Neutrophil count decreased [Recovered/Resolved]
  - Platelet count decreased [Recovered/Resolved]
  - Cerebral infarction [Not Recovered/Not Resolved]
  - Pneumonia [Recovered/Resolved]
  - Cardiac failure congestive [Recovering/Resolving]
  - Bronchopneumonia [Recovered/Resolved]
  - Muscular weakness [Recovered/Resolved]
  - Prothrombin time ratio increased [Recovered/Resolved]
  - Blood creatinine increased [Not Recovered/Not Resolved]
  - Decreased appetite [Recovered/Resolved]
  - Neuropathy peripheral [Recovering/Resolving]
  - Dyspnoea [Recovered/Resolved]
  - Constipation [Recovered/Resolved]
  - Pyrexia [Recovering/Resolving]
  - Herpes zoster [Unknown]
  - C-reactive protein increased [Recovering/Resolving]
